FAERS Safety Report 23298593 (Version 1)
Quarter: 2023Q4

REPORT INFORMATION
  Report Type: Spontaneous
  Country: DE (occurrence: DE)
  Receive Date: 20231214
  Receipt Date: 20231214
  Transmission Date: 20240109
  Serious: Yes (Hospitalization, Other)
  Sender: FDA-Public Use
  Company Number: None

PATIENT
  Age: 72 Year
  Sex: Male

DRUGS (8)
  1. CEFUROXIME AXETIL [Suspect]
     Active Substance: CEFUROXIME AXETIL
     Indication: Diverticulitis
     Dosage: UNK
     Route: 065
     Dates: start: 20230403
  2. METAMIZOL [Suspect]
     Active Substance: METAMIZOLE SODIUM
     Indication: Diverticulitis
     Dosage: UNK
     Route: 065
     Dates: start: 20230403
  3. METRONIDAZOLE [Suspect]
     Active Substance: METRONIDAZOLE
     Indication: Diverticulitis
     Dosage: UNK
     Route: 065
     Dates: start: 20230403
  4. Bisobeta 5 [Concomitant]
     Indication: Product used for unknown indication
     Dosage: 5 MILLIGRAM, QD
     Route: 065
  5. JARDIANCE [Concomitant]
     Active Substance: EMPAGLIFLOZIN
     Indication: Product used for unknown indication
     Dosage: 10 MILLIGRAM, QD (EVERY 1 DAY)
     Route: 065
  6. Pantoprazol - 1A Pharma 40 mg magensaftresistente Tabletten [Concomitant]
     Indication: Product used for unknown indication
     Dosage: 40 MILLIGRAM, QD
     Route: 065
  7. Siofor 850 [Concomitant]
     Indication: Product used for unknown indication
     Dosage: 850 MILLIGRAM, QD
     Route: 065
  8. Vocado HCT 40 mg/10 mg/12,5 mg Filmtabletten [Concomitant]
     Indication: Blood pressure measurement
     Dosage: 1 DOSAGE FORM, QD (EVERY 1 DAY)
     Route: 065

REACTIONS (5)
  - Circulatory collapse [Recovered/Resolved]
  - Anaphylactic reaction [Recovered/Resolved]
  - Face oedema [Recovered/Resolved]
  - Cough [Recovered/Resolved]
  - Dyspnoea [Recovered/Resolved]

NARRATIVE: CASE EVENT DATE: 20230403
